FAERS Safety Report 6981529-9 (Version None)
Quarter: 2010Q3

REPORT INFORMATION
  Report Type: 
  Country: None (occurrence: None)
  Receive Date: 20100914
  Receipt Date: 20100907
  Transmission Date: 20110219
  Serious: Yes (Hospitalization)
  Sender: FDA-Public Use
  Company Number: PHHO2010US05325

PATIENT
  Sex: Female
  Weight: 61.678 kg

DRUGS (22)
  1. AFINITOR [Interacting]
     Indication: GLIOBLASTOMA MULTIFORME
     Dosage: 10 MG QD
     Route: 048
     Dates: start: 20091028
  2. TEMOZOLOMIDE [Suspect]
     Indication: GLIOBLASTOMA MULTIFORME
     Dosage: 140MG QD
     Route: 048
     Dates: start: 20090819, end: 20091013
  3. AVASTIN [Suspect]
     Indication: GLIOBLASTOMA MULTIFORME
     Dosage: 10MG/M2 Q2WKS
     Route: 042
     Dates: start: 20090819
  4. FLAGYL [Interacting]
  5. MAGIC MOUTHWASH [Concomitant]
  6. NEXIUM [Concomitant]
  7. VITAMIN D [Concomitant]
  8. XANAX [Concomitant]
  9. TOPAMAX [Concomitant]
  10. TYLENOL [Concomitant]
  11. AMBIEN [Concomitant]
  12. BACTRIM DS [Concomitant]
  13. CALCIUM PHOSPHATE [Concomitant]
  14. CEPHALEXIN [Concomitant]
  15. DIFLUCAN [Concomitant]
  16. KEFLEX [Concomitant]
  17. KEPPRA [Concomitant]
  18. MYCOLOG-II [Concomitant]
  19. PNEUMOVAX 23 [Concomitant]
  20. TEMOZOLOMIDE [Concomitant]
  21. RABIES VACCINE [Concomitant]
  22. ZITHROMAX [Concomitant]

REACTIONS (25)
  - ANXIETY [None]
  - ARTHRALGIA [None]
  - ASTHENIA [None]
  - CHOLECYSTECTOMY [None]
  - CHOLECYSTITIS [None]
  - CHOLELITHIASIS [None]
  - CONVULSION [None]
  - CONVULSIVE THRESHOLD LOWERED [None]
  - DECREASED APPETITE [None]
  - DIZZINESS [None]
  - DRUG INTERACTION [None]
  - EARLY SATIETY [None]
  - FLANK PAIN [None]
  - GALLBLADDER DISORDER [None]
  - HEADACHE [None]
  - INTRACRANIAL HYPOTENSION [None]
  - INTRACRANIAL PRESSURE INCREASED [None]
  - MALAISE [None]
  - MUSCULOSKELETAL PAIN [None]
  - NAUSEA [None]
  - NERVOUS SYSTEM DISORDER [None]
  - NYSTAGMUS [None]
  - RHINORRHOEA [None]
  - VOMITING [None]
  - WEIGHT DECREASED [None]
